FAERS Safety Report 4764934-0 (Version None)
Quarter: 2005Q3

REPORT INFORMATION
  Report Type: 
  Country: None (occurrence: None)
  Receive Date: 20050909
  Receipt Date: 20050301
  Transmission Date: 20060218
  Serious: Yes (Hospitalization)
  Sender: FDA-Public Use
  Company Number: FR-ROCHE-397172

PATIENT
  Age: 3 Year
  Sex: Male
  Weight: 3.9 kg

DRUGS (7)
  1. HIVID [Suspect]
     Indication: HIV INFECTION
     Dates: start: 20020429, end: 20020704
  2. HIVID [Suspect]
     Dates: start: 20040429
  3. RETROVIR [Suspect]
     Indication: HIV INFECTION
     Dates: start: 20020604, end: 20020704
  4. VIREAD [Suspect]
     Indication: HIV INFECTION
     Dates: start: 20020429, end: 20020704
  5. KALETRA [Suspect]
     Indication: HIV INFECTION
     Dates: start: 20020429, end: 20020704
  6. DIDANOSINE [Suspect]
     Indication: HIV INFECTION
     Dates: end: 20020429
  7. RETROVIR [Suspect]

REACTIONS (4)
  - CONGENITAL NEUROLOGICAL DISORDER [None]
  - DEVELOPMENTAL DELAY [None]
  - DRUG EXPOSURE DURING PREGNANCY [None]
  - MENTAL RETARDATION SEVERITY UNSPECIFIED [None]
